FAERS Safety Report 24346292 (Version 2)
Quarter: 2024Q3

REPORT INFORMATION
  Report Type: Report from Study
  Country: US (occurrence: US)
  Receive Date: 20240921
  Receipt Date: 20240930
  Transmission Date: 20241016
  Serious: Yes (Hospitalization)
  Sender: ROCHE
  Company Number: US-ROCHE-10000079899

PATIENT
  Age: 57 Year
  Sex: Male

DRUGS (22)
  1. OCRELIZUMAB [Suspect]
     Active Substance: OCRELIZUMAB
     Indication: Multiple sclerosis
     Route: 065
  2. CLADRIBINE [Concomitant]
     Active Substance: CLADRIBINE
     Dates: start: 20201016, end: 20201020
  3. CLADRIBINE [Concomitant]
     Active Substance: CLADRIBINE
     Dates: start: 20211117
  4. DICLOFENAC [Concomitant]
     Active Substance: DICLOFENAC
     Dates: start: 20201027
  5. BACLOFEN [Concomitant]
     Active Substance: BACLOFEN
     Dates: start: 20160915
  6. OMEPRAZOLE [Concomitant]
     Active Substance: OMEPRAZOLE
     Dates: start: 20190206
  7. CHOLECALCIFEROL [Concomitant]
     Active Substance: CHOLECALCIFEROL
     Dates: start: 20180227
  8. POLYETHYLENE GLYCOL [Concomitant]
     Active Substance: POLYETHYLENE GLYCOL
     Dates: start: 20240703, end: 20240705
  9. POLYETHYLENE GLYCOL [Concomitant]
     Active Substance: POLYETHYLENE GLYCOL
     Dates: start: 20190206
  10. AMLODIPINE [Concomitant]
     Active Substance: AMLODIPINE BESYLATE
     Dates: start: 20211007, end: 20230202
  11. APIXABAN [Concomitant]
     Active Substance: APIXABAN
     Dates: start: 20220311
  12. BISACODYL [Concomitant]
     Active Substance: BISACODYL
     Dates: start: 20240703, end: 20240705
  13. ONDANSETRON [Concomitant]
     Active Substance: ONDANSETRON
     Dates: start: 20240703, end: 20240705
  14. TYLENOL [Concomitant]
     Active Substance: ACETAMINOPHEN
     Dates: start: 20240703, end: 20240705
  15. ENOXAPARIN [Concomitant]
     Active Substance: ENOXAPARIN
     Dates: start: 20240703, end: 20240705
  16. SODIUM CHLORIDE [Concomitant]
     Active Substance: SODIUM CHLORIDE
     Dates: start: 20240703, end: 20240705
  17. SODIUM CHLORIDE [Concomitant]
     Active Substance: SODIUM CHLORIDE
     Dates: start: 20240705, end: 20240705
  18. CEFTRIAXONE [Concomitant]
     Active Substance: CEFTRIAXONE\CEFTRIAXONE SODIUM
     Dates: start: 20240703, end: 20240705
  19. OMNIPAQUE [Concomitant]
     Active Substance: IOHEXOL
     Dates: start: 20240703, end: 20240703
  20. CEPHALEXIN [Concomitant]
     Active Substance: CEPHALEXIN
     Dates: start: 20240703, end: 20240710
  21. MORPHINE [Concomitant]
     Active Substance: MORPHINE
     Dates: start: 20240705, end: 20240705
  22. DOCUSATE SODIUM [Concomitant]
     Active Substance: DOCUSATE SODIUM
     Dates: start: 20211105

REACTIONS (2)
  - Pulmonary oedema [Recovered/Resolved]
  - Tooth infection [Recovered/Resolved]

NARRATIVE: CASE EVENT DATE: 20240806
